FAERS Safety Report 12289260 (Version 48)
Quarter: 2018Q3

REPORT INFORMATION
  Report Type: Report from Study
  Country: CA (occurrence: CA)
  Receive Date: 20160421
  Receipt Date: 20180828
  Transmission Date: 20181010
  Serious: Yes (Hospitalization, Other)
  Sender: FDA-Public Use
  Company Number: CA-ROCHE-1713608

PATIENT
  Age: 50 Year
  Sex: Male
  Weight: 95 kg

DRUGS (20)
  1. ACTEMRA [Suspect]
     Active Substance: TOCILIZUMAB
     Route: 042
     Dates: start: 20160126
  2. ZOFRAN [Concomitant]
     Active Substance: ONDANSETRON HYDROCHLORIDE
     Indication: VOMITING
  3. FOLIC ACID. [Concomitant]
     Active Substance: FOLIC ACID
  4. ZOFRAN [Concomitant]
     Active Substance: ONDANSETRON HYDROCHLORIDE
     Indication: NAUSEA
     Dosage: UP TO 3 TIMES A DAY
     Route: 065
  5. FLOMAX [Concomitant]
     Active Substance: TAMSULOSIN HYDROCHLORIDE
     Route: 065
  6. VALSARTAN. [Concomitant]
     Active Substance: VALSARTAN
     Route: 065
  7. MORPHINE [Suspect]
     Active Substance: MORPHINE
     Indication: PRODUCT USED FOR UNKNOWN INDICATION
     Route: 065
  8. AMLODIPINE [Concomitant]
     Active Substance: AMLODIPINE BESYLATE
     Route: 065
  9. BUSCOPAN [Concomitant]
     Active Substance: BUTYLSCOPOLAMINE BROMIDE
     Dosage: UP TO 3 TIMES A DAY
     Route: 065
  10. ACTEMRA [Suspect]
     Active Substance: TOCILIZUMAB
     Indication: RHEUMATOID ARTHRITIS
     Route: 042
     Dates: start: 20151224
  11. ACTEMRA [Suspect]
     Active Substance: TOCILIZUMAB
     Dosage: INFUSION NUMBER 14
     Route: 042
     Dates: start: 20170523
  12. VITAMIN B12 [Concomitant]
     Active Substance: CYANOCOBALAMIN
     Route: 065
  13. DILAUDID [Concomitant]
     Active Substance: HYDROMORPHONE HYDROCHLORIDE
  14. LEFLUNOMIDE. [Concomitant]
     Active Substance: LEFLUNOMIDE
     Route: 065
  15. CIPROFLOXACIN. [Concomitant]
     Active Substance: CIPROFLOXACIN
     Route: 065
     Dates: start: 20180815
  16. XANAX [Suspect]
     Active Substance: ALPRAZOLAM
     Indication: PRODUCT USED FOR UNKNOWN INDICATION
     Route: 065
  17. SIMPONI [Concomitant]
     Active Substance: GOLIMUMAB
     Dosage: LAST INJECTION 25?SEPT?UNK
     Route: 065
  18. EZETIMIBE. [Concomitant]
     Active Substance: EZETIMIBE
     Route: 065
  19. METHOTREXATE. [Suspect]
     Active Substance: METHOTREXATE
     Indication: PRODUCT USED FOR UNKNOWN INDICATION
     Route: 065
  20. CREON [Concomitant]
     Active Substance: PANCRELIPASE AMYLASE\PANCRELIPASE LIPASE\PANCRELIPASE PROTEASE
     Dosage: 1/WITH MEALS
     Route: 065

REACTIONS (38)
  - Vomiting [Not Recovered/Not Resolved]
  - Nausea [Unknown]
  - Pharyngeal abscess [Recovered/Resolved]
  - Infection [Unknown]
  - Pain [Not Recovered/Not Resolved]
  - Intercepted product storage error [Unknown]
  - Lung neoplasm [Unknown]
  - Nephrolithiasis [Recovered/Resolved]
  - Kidney infection [Unknown]
  - Sepsis [Unknown]
  - Oral infection [Recovered/Resolved]
  - Ill-defined disorder [Not Recovered/Not Resolved]
  - Drug hypersensitivity [Unknown]
  - Bronchitis [Not Recovered/Not Resolved]
  - Heart rate increased [Unknown]
  - Pancreatic neoplasm [Unknown]
  - Mouth ulceration [Recovered/Resolved]
  - Weight increased [Unknown]
  - Post procedural infection [Not Recovered/Not Resolved]
  - Pituitary tumour [Unknown]
  - Spleen disorder [Unknown]
  - Arthritis [Not Recovered/Not Resolved]
  - Hypoaesthesia [Not Recovered/Not Resolved]
  - Anxiety [Not Recovered/Not Resolved]
  - Infection [Unknown]
  - Protein urine present [Unknown]
  - Blood pressure increased [Unknown]
  - Swelling [Unknown]
  - Weight decreased [Recovering/Resolving]
  - Nasopharyngitis [Not Recovered/Not Resolved]
  - Pharyngitis [Not Recovered/Not Resolved]
  - Oxygen saturation decreased [Unknown]
  - Nephrolithiasis [Unknown]
  - Pancreatic carcinoma [Unknown]
  - Pyrexia [Unknown]
  - Fall [Unknown]
  - Skin infection [Unknown]
  - Urinary tract infection [Unknown]

NARRATIVE: CASE EVENT DATE: 2016
